FAERS Safety Report 7121848-9 (Version None)
Quarter: 2010Q4

REPORT INFORMATION
  Report Type: 
  Country: None (occurrence: None)
  Receive Date: 20101124
  Receipt Date: 20101120
  Transmission Date: 20110411
  Serious: Yes (Hospitalization)
  Sender: FDA-Public Use
  Company Number: DE-ROCHE-743409

PATIENT
  Sex: Male
  Weight: 100 kg

DRUGS (7)
  1. TOCILIZUMAB [Suspect]
     Indication: RHEUMATOID ARTHRITIS
     Dosage: FIRST APPLICATION WAS GIVEN AT 480 MG, ALL THE FOLLOWING ONES AT 800 MG
     Route: 042
     Dates: start: 20091015, end: 20100215
  2. TOCILIZUMAB [Suspect]
     Route: 042
     Dates: start: 20100719, end: 20100928
  3. PREDNISOLONE [Suspect]
     Indication: RHEUMATOID ARTHRITIS
     Route: 048
  4. PREDNISOLONE [Suspect]
     Route: 048
  5. METHOTREXAT [Suspect]
     Indication: RHEUMATOID ARTHRITIS
     Dosage: S.C. GIVEN SINCE JAN 2009, FOLLOWED BY ORAL AT 10 MG SINCE APR 2010
     Route: 048
     Dates: start: 20090101, end: 20100610
  6. METHOTREXAT [Suspect]
     Route: 048
  7. HYDROXYCHLOROQUINE [Suspect]
     Indication: RHEUMATOID ARTHRITIS
     Route: 048

REACTIONS (4)
  - ABDOMINAL WOUND DEHISCENCE [None]
  - GASTROINTESTINAL NECROSIS [None]
  - ILEUS [None]
  - IMPAIRED HEALING [None]
